FAERS Safety Report 9911555 (Version 1)
Quarter: 2014Q1

REPORT INFORMATION
  Report Type: Spontaneous
  Country: US (occurrence: US)
  Receive Date: 20140219
  Receipt Date: 20140219
  Transmission Date: 20141002
  Serious: Yes (Hospitalization, Other)
  Sender: FDA-Public Use
  Company Number: PHHY2014US017224

PATIENT
  Age: 31 Year
  Sex: Female

DRUGS (2)
  1. DOXORUBICIN [Suspect]
     Indication: SPINDLE CELL SARCOMA
  2. IFOSFAMIDE [Suspect]
     Indication: SPINDLE CELL SARCOMA

REACTIONS (13)
  - Cardiac failure [Unknown]
  - Dyspnoea [Recovering/Resolving]
  - Oedema peripheral [Recovering/Resolving]
  - Crepitations [Recovering/Resolving]
  - Oedema [Recovering/Resolving]
  - Ventricular hypokinesia [Recovering/Resolving]
  - Pericardial effusion [Recovering/Resolving]
  - Congestive cardiomyopathy [Unknown]
  - Left ventricular dysfunction [Unknown]
  - Venous pressure jugular increased [Recovering/Resolving]
  - Spindle cell sarcoma [Unknown]
  - Malignant neoplasm progression [Unknown]
  - Pulmonary arterial pressure increased [Recovering/Resolving]
